FAERS Safety Report 17684091 (Version 6)
Quarter: 2020Q4

REPORT INFORMATION
  Report Type: Report from Study
  Country: CA (occurrence: CA)
  Receive Date: 20200420
  Receipt Date: 20201231
  Transmission Date: 20210113
  Serious: Yes (Hospitalization, Other)
  Sender: FDA-Public Use
  Company Number: PHHY2013CA011110

PATIENT
  Age: 76 Year
  Sex: Female

DRUGS (4)
  1. SANDOSTATIN LAR DEPOT [Suspect]
     Active Substance: OCTREOTIDE ACETATE
     Dosage: 30 MG, QMO
     Route: 030
     Dates: start: 20170629
  2. SANDOSTATIN LAR DEPOT [Suspect]
     Active Substance: OCTREOTIDE ACETATE
     Dosage: 10 MG, QMO
     Route: 030
  3. SANDOSTATIN LAR DEPOT [Suspect]
     Active Substance: OCTREOTIDE ACETATE
     Dosage: 30 MG, QMO
     Route: 030
  4. SANDOSTATIN LAR DEPOT [Suspect]
     Active Substance: OCTREOTIDE ACETATE
     Indication: NEUROENDOCRINE TUMOUR
     Dosage: 30 MG, QMO
     Route: 030
     Dates: start: 20121109

REACTIONS (32)
  - Body temperature decreased [Unknown]
  - Memory impairment [Unknown]
  - Aggression [Unknown]
  - Urinary tract infection [Recovering/Resolving]
  - Hyperhidrosis [Unknown]
  - Back pain [Unknown]
  - Depressed mood [Unknown]
  - Atrial fibrillation [Unknown]
  - Rash [Unknown]
  - Injection site pain [Recovered/Resolved]
  - Injection site mass [Unknown]
  - Chest pain [Unknown]
  - Fall [Unknown]
  - Injection site pain [Unknown]
  - Dementia [Unknown]
  - Eating disorder [Unknown]
  - Scar [Unknown]
  - Toothache [Recovered/Resolved]
  - Lethargy [Unknown]
  - Injection site mass [Recovered/Resolved]
  - Blood pressure systolic increased [Unknown]
  - Anxiety [Unknown]
  - Blood potassium decreased [Unknown]
  - Palpitations [Unknown]
  - Dyspnoea [Unknown]
  - Pain [Unknown]
  - Nausea [Unknown]
  - Injection site mass [Recovered/Resolved]
  - Blood pressure increased [Unknown]
  - Influenza [Unknown]
  - Myalgia [Unknown]
  - Fatigue [Unknown]

NARRATIVE: CASE EVENT DATE: 20130705
